FAERS Safety Report 12203586 (Version 2)
Quarter: 2016Q2

REPORT INFORMATION
  Report Type: Spontaneous
  Country: US (occurrence: US)
  Receive Date: 20160323
  Receipt Date: 20160401
  Transmission Date: 20160815
  Serious: Yes (Hospitalization, Other)
  Sender: FDA-Public Use
  Company Number: US-BEH-2016060290

PATIENT
  Sex: Male
  Weight: 22.1 kg

DRUGS (17)
  1. PRIVIGEN [Suspect]
     Active Substance: HUMAN IMMUNOGLOBULIN G
     Indication: POLYNEUROPATHY
     Dosage: STRENGTH OF DOSAGE FORM: 20GM
     Route: 042
  2. BACLOFEN. [Concomitant]
     Active Substance: BACLOFEN
  3. EPIPEN JR [Concomitant]
     Active Substance: EPINEPHRINE
  4. LMX [Concomitant]
     Active Substance: LIDOCAINE
  5. BUDESONIDE. [Concomitant]
     Active Substance: BUDESONIDE
  6. ALBUTEROL SULFATE. [Concomitant]
     Active Substance: ALBUTEROL SULFATE
  7. TOPIRAMATE. [Concomitant]
     Active Substance: TOPIRAMATE
  8. OMEPRAZOLE. [Concomitant]
     Active Substance: OMEPRAZOLE
  9. DIPHENHYDRAMINE. [Concomitant]
     Active Substance: DIPHENHYDRAMINE
  10. PRIVIGEN [Suspect]
     Active Substance: HUMAN IMMUNOGLOBULIN G
     Indication: ENCEPHALOMYELITIS
     Dosage: STRENGTH OF DOSAGE FORM: 20GM
     Route: 042
  11. HEPARIN [Concomitant]
     Active Substance: HEPARIN SODIUM
  12. ACETAMINOPHEN. [Concomitant]
     Active Substance: ACETAMINOPHEN
  13. NORMAL SALINE [Concomitant]
     Active Substance: SODIUM CHLORIDE
  14. TRIHEXYPHENIDYL [Concomitant]
     Active Substance: TRIHEXYPHENIDYL
  15. KEPPRA [Concomitant]
     Active Substance: LEVETIRACETAM
  16. SODIUM CHLORIDE. [Concomitant]
     Active Substance: SODIUM CHLORIDE
  17. LIOTHYRONINE SODIUM POWDER [Concomitant]

REACTIONS (1)
  - Device related infection [Unknown]
